FAERS Safety Report 5420475-9 (Version None)
Quarter: 2007Q3

REPORT INFORMATION
  Report Type: 
  Country: None (occurrence: None)
  Receive Date: 20070821
  Receipt Date: 20070816
  Transmission Date: 20080115
  Serious: Yes (Other)
  Sender: FDA-Public Use
  Company Number: PHEH2007US10772

PATIENT
  Age: 54 Year
  Sex: Male
  Weight: 85.26 kg

DRUGS (4)
  1. TEKTURNA [Suspect]
     Dosage: 150 MG, QD
     Route: 048
     Dates: start: 20070614, end: 20070727
  2. LIPITOR [Concomitant]
     Dosage: 40MG, UNK
  3. LITHIUM CARBONATE [Concomitant]
     Dosage: 450 CR, UNK
  4. TRILEPTAL [Concomitant]
     Dosage: 900, UNK

REACTIONS (4)
  - CHEST DISCOMFORT [None]
  - LIP SWELLING [None]
  - PHARYNGEAL OEDEMA [None]
  - THROAT TIGHTNESS [None]
